FAERS Safety Report 6101487-9 (Version None)
Quarter: 2009Q1

REPORT INFORMATION
  Report Type: 
  Country: None (occurrence: None)
  Receive Date: 20090304
  Receipt Date: 20090224
  Transmission Date: 20090719
  Serious: Yes (Hospitalization)
  Sender: FDA-Public Use
  Company Number: DE-ASTRAZENECA-2009PK00664

PATIENT
  Age: 29 Year
  Sex: Female

DRUGS (2)
  1. SCANDICAIN [Suspect]
     Indication: ANAESTHESIA
     Route: 023
  2. ROPIVACAIN [Suspect]
     Indication: ANAESTHESIA
     Route: 037

REACTIONS (1)
  - EMBOLIA CUTIS MEDICAMENTOSA [None]
